FAERS Safety Report 26000174 (Version 2)
Quarter: 2025Q4

REPORT INFORMATION
  Report Type: Spontaneous
  Country: US (occurrence: US)
  Receive Date: 20251105
  Receipt Date: 20251106
  Transmission Date: 20260117
  Serious: No
  Sender: APOTEX
  Company Number: US-APOTEX-2025AP031529

PATIENT
  Sex: Female

DRUGS (1)
  1. TAMOXIFEN [Suspect]
     Active Substance: TAMOXIFEN
     Indication: Breast cancer female
     Dosage: UNK
     Route: 065

REACTIONS (6)
  - Adverse drug reaction [Unknown]
  - Feeling abnormal [Unknown]
  - Libido decreased [Unknown]
  - Vulvovaginal dryness [Unknown]
  - Pain [Unknown]
  - Hot flush [Unknown]
